FAERS Safety Report 10044412 (Version 1)
Quarter: 2014Q1

REPORT INFORMATION
  Report Type: Spontaneous
  Country: US (occurrence: US)
  Receive Date: 20140328
  Receipt Date: 20140328
  Transmission Date: 20141002
  Serious: No
  Sender: FDA-Public Use
  Company Number: US-JNJFOC-20140313628

PATIENT
  Age: 51 Year
  Sex: Female
  Weight: 36.74 kg

DRUGS (22)
  1. FENTANYL TRANSDERMAL SYSTEM [Suspect]
     Indication: PAIN
     Route: 062
  2. COUMADIN [Concomitant]
     Indication: DEEP VEIN THROMBOSIS
     Route: 048
     Dates: end: 2014
  3. GABAPENTINE [Concomitant]
     Indication: CONVULSION
     Route: 048
  4. GABAPENTINE [Concomitant]
     Indication: PAIN
     Route: 048
  5. OXYCODONE [Concomitant]
     Indication: PAIN
     Route: 048
  6. ZOCOR [Concomitant]
     Route: 048
  7. CRESTOR [Concomitant]
     Route: 048
  8. METFORMIN [Concomitant]
     Indication: DIABETES MELLITUS
     Route: 048
  9. POTASSIUM [Concomitant]
     Indication: ELECTROLYTE SUBSTITUTION THERAPY
     Route: 048
  10. PROPRANOLOL [Concomitant]
     Indication: BLOOD PRESSURE
     Route: 048
  11. NITRO [Concomitant]
     Indication: ANGINA PECTORIS
     Route: 060
  12. PHENERGAN [Concomitant]
     Indication: NAUSEA
     Dosage: 4-6 HOURS AS NEEDED
     Route: 048
  13. METHOTREXATE [Concomitant]
     Indication: RHEUMATOID ARTHRITIS
     Route: 065
  14. FOLIC ACID [Concomitant]
     Indication: RHEUMATOID ARTHRITIS
     Route: 048
  15. CLARITIN [Concomitant]
     Route: 048
  16. LORAZEPAM [Concomitant]
     Indication: CONVULSION
     Route: 048
  17. LORAZEPAM [Concomitant]
     Indication: CONVULSION
     Route: 048
     Dates: start: 2006
  18. ALBUTEROL [Concomitant]
     Indication: RESPIRATORY DISORDER
     Route: 055
  19. PREDNISONE [Concomitant]
     Indication: OSTEOPOROSIS
     Route: 048
  20. PREDNISONE [Concomitant]
     Indication: OSTEOPOROSIS
     Route: 048
  21. PREDNISONE [Concomitant]
     Indication: RHEUMATOID ARTHRITIS
     Route: 048
  22. PREDNISONE [Concomitant]
     Indication: RHEUMATOID ARTHRITIS
     Route: 048

REACTIONS (1)
  - Drug dose omission [Unknown]
